FAERS Safety Report 12689167 (Version 1)
Quarter: 2016Q3

REPORT INFORMATION
  Report Type: Spontaneous
  Country: US (occurrence: None)
  Receive Date: 20160825
  Receipt Date: 20160825
  Transmission Date: 20161109
  Serious: Yes (Other)
  Sender: FDA-Public Use
  Company Number: None

PATIENT
  Age: 62 Year
  Sex: Male
  Weight: 71.67 kg

DRUGS (9)
  1. MULTIVITAMIN EQUATE ADULTS 50+ [Concomitant]
  2. ESTER-C [Concomitant]
     Active Substance: CALCIUM\VITAMINS
  3. TAMULOSIN [Suspect]
     Active Substance: TAMSULOSIN
     Indication: BENIGN PROSTATIC HYPERPLASIA
     Dosage: 7 CAPSULE(S) IN THE MORNING TAKEN BY MOUTH
     Route: 048
  4. XANEX [Concomitant]
  5. ZINC GLUCONATE [Concomitant]
     Active Substance: ZINC GLUCONATE
  6. COENZYME [Concomitant]
     Active Substance: UBIDECARENONE
  7. FISH OIL [Concomitant]
     Active Substance: FISH OIL
  8. MAGNESIUM OXIDE. [Concomitant]
     Active Substance: MAGNESIUM OXIDE
  9. LISINOPRIL, 10 MG LUPIN [Suspect]
     Active Substance: LISINOPRIL
     Indication: HYPERTENSION
     Route: 048
     Dates: start: 20160810, end: 20160821

REACTIONS (7)
  - Dizziness [None]
  - Panic attack [None]
  - Nausea [None]
  - Anxiety [None]
  - Tachycardia [None]
  - Pulmonary congestion [None]
  - Blood pressure increased [None]

NARRATIVE: CASE EVENT DATE: 20160821
